FAERS Safety Report 25568020 (Version 1)
Quarter: 2025Q3

REPORT INFORMATION
  Report Type: Spontaneous
  Country: CA (occurrence: CA)
  Receive Date: 20250716
  Receipt Date: 20250716
  Transmission Date: 20251020
  Serious: Yes (Other)
  Sender: FRESENIUS KABI
  Company Number: CA-FreseniusKabi-FK202509497

PATIENT

DRUGS (22)
  1. FENTANYL [Suspect]
     Active Substance: FENTANYL
     Indication: Traumatic pain
     Route: 064
  2. HYDROMORPHONE HYDROCHLORIDE [Suspect]
     Active Substance: HYDROMORPHONE HYDROCHLORIDE
     Indication: Traumatic pain
     Route: 064
  3. HYDROMORPHONE HYDROCHLORIDE [Suspect]
     Active Substance: HYDROMORPHONE HYDROCHLORIDE
     Dosage: 8 MILLIGRAM, 3 EVERY 1 DAYS
     Route: 064
  4. HYDROMORPHONE HYDROCHLORIDE [Suspect]
     Active Substance: HYDROMORPHONE HYDROCHLORIDE
     Route: 064
  5. HYDROMORPHONE HYDROCHLORIDE [Suspect]
     Active Substance: HYDROMORPHONE HYDROCHLORIDE
     Dosage: FOA: SOLUTION FOR INJECTION ?8 MILLIGRAM, 3 EVERY 1 DAYS
     Route: 064
  6. HYDROMORPHONE HYDROCHLORIDE [Suspect]
     Active Substance: HYDROMORPHONE HYDROCHLORIDE
     Dosage: FOA: SOLUTION FOR INJECTION ?8 MILLIGRAM, 6 EVERY 1 DAYS
     Route: 064
  7. PANTOPRAZOLE [Suspect]
     Active Substance: PANTOPRAZOLE
     Indication: Product used for unknown indication
     Route: 064
  8. PANTOPRAZOLE [Suspect]
     Active Substance: PANTOPRAZOLE
     Route: 064
  9. AMITRIPTYLINE [Suspect]
     Active Substance: AMITRIPTYLINE
     Indication: Product used for unknown indication
     Route: 064
  10. AMITRIPTYLINE [Suspect]
     Active Substance: AMITRIPTYLINE
     Dosage: FOA: TABLET?25 MILLIGRAM, 1 EVERY 1 DAYS
     Route: 064
  11. ENOXAPARIN [Suspect]
     Active Substance: ENOXAPARIN
     Indication: Product used for unknown indication
     Route: 064
  12. FENTANYL [Suspect]
     Active Substance: FENTANYL
     Indication: Traumatic pain
     Route: 064
  13. FENTANYL [Suspect]
     Active Substance: FENTANYL
     Route: 064
  14. GRAVOL [Suspect]
     Active Substance: DIMENHYDRINATE
     Indication: Product used for unknown indication
     Route: 064
  15. GRAVOL [Suspect]
     Active Substance: DIMENHYDRINATE
     Route: 064
  16. HYDROMORPHONE [Suspect]
     Active Substance: HYDROMORPHONE
     Indication: Traumatic pain
     Dosage: FOA: CAPSULE, SUSTAINED-RELEASE?24 MILLIGRAM, 3 EVERY 1 DAYS
     Route: 064
  17. HYDROMORPHONE [Suspect]
     Active Substance: HYDROMORPHONE
     Dosage: FOA: PROLONGED-RELEASE CAPSULE?24 MILLIGRAM, 3 EVERY 1 DAYS
     Route: 064
  18. LORAZEPAM [Suspect]
     Active Substance: LORAZEPAM
     Indication: Product used for unknown indication
     Dosage: 0.5 MILLIGRAM, 1 EVERY 1 DAYS
     Route: 064
  19. LORAZEPAM [Suspect]
     Active Substance: LORAZEPAM
     Dosage: FOA: NOT SPECIFIED?0.5 MILLIGRAM, 1 EVERY 1 DAYS
     Route: 064
  20. ONDANSETRON HYDROCHLORIDE [Suspect]
     Active Substance: ONDANSETRON HYDROCHLORIDE
     Indication: Product used for unknown indication
     Route: 064
  21. PROCHLORPERAZINE [Suspect]
     Active Substance: PROCHLORPERAZINE
     Indication: Product used for unknown indication
     Route: 064
  22. PROCHLORPERAZINE [Suspect]
     Active Substance: PROCHLORPERAZINE
     Route: 064

REACTIONS (3)
  - Maternal exposure during pregnancy [Recovered/Resolved]
  - Premature baby [Recovered/Resolved]
  - Pulmonary embolism [Recovered/Resolved]
